FAERS Safety Report 11777457 (Version 2)
Quarter: 2015Q4

REPORT INFORMATION
  Report Type: Spontaneous
  Country: CA (occurrence: CA)
  Receive Date: 20151125
  Receipt Date: 20151210
  Transmission Date: 20160304
  Serious: Yes (Hospitalization, Other)
  Sender: FDA-Public Use
  Company Number: CA-AMGEN-CANSP2015123283

PATIENT
  Age: 54 Year
  Sex: Male
  Weight: 59.5 kg

DRUGS (2)
  1. SENSIPAR [Suspect]
     Active Substance: CINACALCET HYDROCHLORIDE
     Indication: HYPERPARATHYROIDISM SECONDARY
     Dosage: UNK
     Route: 048
  2. ENBREL [Concomitant]
     Active Substance: ETANERCEPT
     Dosage: 120 MG, UNK

REACTIONS (3)
  - Oesophagitis [Unknown]
  - Intestinal ischaemia [Unknown]
  - Incorrect route of drug administration [Unknown]
